FAERS Safety Report 6652462-7 (Version None)
Quarter: 2010Q1

REPORT INFORMATION
  Report Type: 
  Country: None (occurrence: None)
  Receive Date: 20100323
  Receipt Date: 20100305
  Transmission Date: 20100710
  Serious: Yes (Other)
  Sender: FDA-Public Use
  Company Number: 2009-00053

PATIENT
  Age: 76 Year
  Sex: Male

DRUGS (7)
  1. SERTRALINE HCL [Suspect]
     Indication: DEPRESSED MOOD
     Dosage: 50 MG (50 MG OD), ORAL 100 MG (100 MG, QD), ORAL
     Route: 048
  2. PRAMIPEXOLE DIHYDROCHLORIDE [Suspect]
     Indication: PARKINSON'S DISEASE
     Dosage: 1.25 MG (3 IN 1 D), ORAL
     Route: 048
  3. QUININE [Concomitant]
  4. FUROSEMIDE [Concomitant]
  5. MADOPAR (BENSERAZIDE HYDROCHLORIDE + LEVODOPA) [Concomitant]
  6. SPIRONOLACTONE [Concomitant]
  7. INFUMORPH [Concomitant]

REACTIONS (1)
  - VITREOUS FLOATERS [None]
